FAERS Safety Report 7901123-2 (Version None)
Quarter: 2011Q4

REPORT INFORMATION
  Report Type: 
  Country: None (occurrence: None)
  Receive Date: 20111108
  Receipt Date: 20111025
  Transmission Date: 20120403
  Serious: Yes (Hospitalization)
  Sender: FDA-Public Use
  Company Number: US-ELI_LILLY_AND_COMPANY-US201110000644

PATIENT
  Sex: Male

DRUGS (16)
  1. FORTEO [Suspect]
     Indication: OSTEOPOROSIS
     Dosage: 20 UG, QD
     Route: 065
  2. COUMADIN [Concomitant]
  3. NEXIUM [Concomitant]
  4. PROSCAR [Concomitant]
  5. QUININE SULFATE [Concomitant]
  6. PRESERVISION LUTEIN EYE VITA.+MIN.SUP.SOFTG. [Concomitant]
     Indication: MACULAR DEGENERATION
     Dosage: UNK, BID
  7. VITAMIN D [Concomitant]
     Dosage: 1000 MG, UNK
  8. FORTEO [Suspect]
     Dosage: 20 UG, QD
     Route: 065
     Dates: start: 20111015
  9. LUTEIN [Concomitant]
     Indication: EYE DISORDER
  10. NITROGLYCERIN [Concomitant]
     Dosage: UNK, PRN
  11. SIMVASTATIN [Concomitant]
     Dosage: 20 MG, QD
  12. CALCIUM W/VITAMIN D                /00188401/ [Concomitant]
     Dosage: UNK, BID
  13. CARDIZEM [Concomitant]
     Dosage: 120 MG, QD
  14. IMDUR [Concomitant]
  15. ASPIRIN [Concomitant]
  16. IRON [Concomitant]

REACTIONS (2)
  - IMPLANTABLE DEFIBRILLATOR INSERTION [None]
  - CARDIAC DISORDER [None]
